FAERS Safety Report 8130580-4 (Version None)
Quarter: 2012Q1

REPORT INFORMATION
  Report Type: 
  Country: None (occurrence: None)
  Receive Date: 20120211
  Receipt Date: 20120209
  Transmission Date: 20120608
  Serious: Yes (Other)
  Sender: FDA-Public Use
  Company Number: US-VERTEX PHARMACEUTICALS INC.-AE-2012-001950

PATIENT
  Sex: Female

DRUGS (3)
  1. PEG-INTRON [Concomitant]
     Indication: HEPATITIS C
     Dates: start: 20050101, end: 20111114
  2. RIBAVIRIN [Concomitant]
     Indication: HEPATITIS C
     Dates: start: 20050101, end: 20111114
  3. INCIVEK [Suspect]
     Indication: HEPATITIS C
     Dates: start: 20111107, end: 20111114

REACTIONS (9)
  - HYPOPHAGIA [None]
  - CHILLS [None]
  - DYSPNOEA [None]
  - WRIST FRACTURE [None]
  - LOSS OF CONSCIOUSNESS [None]
  - ASTHENIA [None]
  - PAIN [None]
  - WEIGHT DECREASED [None]
  - HYPERHIDROSIS [None]
